FAERS Safety Report 8585543 (Version 4)
Quarter: 2013Q1

REPORT INFORMATION
  Report Type: Spontaneous
  Country: JP (occurrence: JP)
  Receive Date: 20120530
  Receipt Date: 20130320
  Transmission Date: 20140127
  Serious: No
  Sender: FDA-Public Use
  Company Number: JP-EISAI INC-E7389-02494-SPO-JP

PATIENT
  Age: 39 Year
  Sex: Female
  Weight: 48 kg

DRUGS (2)
  1. HALAVEN [Suspect]
     Indication: BREAST CANCER RECURRENT
     Dosage: UNKNOWN
     Route: 041
     Dates: start: 201110, end: 20120521
  2. NOLVADEX [Concomitant]
     Indication: BREAST CANCER
     Route: 048

REACTIONS (1)
  - Cell marker increased [Recovered/Resolved]
